FAERS Safety Report 5037280-8 (Version None)
Quarter: 2006Q2

REPORT INFORMATION
  Report Type: 
  Country: None (occurrence: None)
  Receive Date: 20060628
  Receipt Date: 20060622
  Transmission Date: 20061013
  Serious: Yes (Hospitalization)
  Sender: FDA-Public Use
  Company Number: DE-ROCHE-452669

PATIENT
  Age: 73 Year
  Sex: Female

DRUGS (2)
  1. RIVOTRIL [Suspect]
     Route: 065
     Dates: start: 20060415
  2. BOTULINUM TOXIN NOS [Interacting]
     Indication: DYSPHONIA
     Dosage: REPORTED AS APPLIED LOCALLY INTO THE LARYNX
     Route: 050
     Dates: start: 19860615

REACTIONS (4)
  - CYANOSIS [None]
  - DRUG INTERACTION [None]
  - DYSPNOEA [None]
  - LARYNGEAL STENOSIS [None]
